FAERS Safety Report 8322663-0 (Version None)
Quarter: 2012Q2

REPORT INFORMATION
  Report Type: 
  Country: None (occurrence: None)
  Receive Date: 20120430
  Receipt Date: 20120425
  Transmission Date: 20120825
  Serious: Yes (Hospitalization)
  Sender: FDA-Public Use
  Company Number: ES-MERCK-1204ESP00036

PATIENT
  Age: 87 Year
  Sex: Male

DRUGS (7)
  1. CALCIUM CARBONATE AND CHOLECALCIFEROL [Concomitant]
     Route: 048
     Dates: start: 20110101, end: 20110612
  2. ZOCOR [Suspect]
     Indication: HYPERLIPIDAEMIA
     Route: 048
     Dates: end: 20110612
  3. ACENOCOUMAROL [Suspect]
     Indication: ATRIAL FIBRILLATION
     Route: 048
     Dates: start: 20070501, end: 20110612
  4. ESCITALOPRAM [Suspect]
     Route: 048
     Dates: start: 20101201, end: 20110612
  5. FORMOTEROL FUMARATE [Concomitant]
     Route: 055
  6. BUDESONIDE [Concomitant]
     Route: 065
  7. ENALAPRIL MALEATE [Concomitant]
     Indication: HYPERTENSION
     Route: 048
     Dates: end: 20110612

REACTIONS (2)
  - GASTRIC HAEMORRHAGE [None]
  - DRUG INTERACTION [None]
